FAERS Safety Report 7781455-1 (Version None)
Quarter: 2011Q3

REPORT INFORMATION
  Report Type: 
  Country: None (occurrence: None)
  Receive Date: 20110927
  Receipt Date: 20110920
  Transmission Date: 20111222
  Serious: Yes (Hospitalization)
  Sender: FDA-Public Use
  Company Number: US-ALEXION-A201101416

PATIENT
  Sex: Female

DRUGS (7)
  1. ACYCLOVIR [Concomitant]
     Dosage: UNK
  2. MULTI-VITAMINS [Concomitant]
     Dosage: UNK
  3. CALCIUM + VITAMIN D [Concomitant]
     Dosage: UNK
  4. SOLIRIS [Suspect]
     Indication: PAROXYSMAL NOCTURNAL HAEMOGLOBINURIA
     Dosage: 900 MG, Q2W
     Route: 042
  5. DIFLUCAN [Concomitant]
     Dosage: UNK
  6. METAMUCIL-2 [Concomitant]
     Dosage: UNK
  7. FOLIC ACID [Concomitant]
     Dosage: UNK

REACTIONS (4)
  - PNEUMONIA [None]
  - DIARRHOEA [None]
  - PARAINFLUENZAE VIRUS INFECTION [None]
  - ANAEMIA [None]
